FAERS Safety Report 8546337-6 (Version None)
Quarter: 2012Q3

REPORT INFORMATION
  Report Type: 
  Country: None (occurrence: None)
  Receive Date: 20120727
  Receipt Date: 20111215
  Transmission Date: 20120928
  Serious: No
  Sender: FDA-Public Use
  Company Number: US-ASTRAZENECA-2011SE76498

PATIENT
  Age: 62 Year
  Sex: Male

DRUGS (1)
  1. SEROQUEL [Suspect]
     Route: 048

REACTIONS (3)
  - SLEEP DISORDER [None]
  - INSOMNIA [None]
  - DRUG DOSE OMISSION [None]
